FAERS Safety Report 8542712 (Version 2)
Quarter: 2013Q2

REPORT INFORMATION
  Report Type: Spontaneous
  Country: US (occurrence: US)
  Receive Date: 20120502
  Receipt Date: 20130604
  Transmission Date: 20140414
  Serious: No
  Sender: FDA-Public Use
  Company Number: US-AMGEN-USASP2012024277

PATIENT
  Age: 70 Year
  Sex: Female

DRUGS (4)
  1. ENBREL [Suspect]
     Indication: RHEUMATOID ARTHRITIS
     Dosage: 25 MG, 2 TIMES/WK
     Route: 058
  2. METHOTREXATE [Concomitant]
     Dosage: UNK
  3. PREDNISONE [Concomitant]
     Dosage: UNK
  4. ALEVE [Concomitant]
     Dosage: UNK

REACTIONS (4)
  - Arthralgia [Unknown]
  - Pain in extremity [Unknown]
  - Therapeutic response decreased [Not Recovered/Not Resolved]
  - Back pain [Unknown]
